FAERS Safety Report 8767575 (Version 2)
Quarter: 2013Q2

REPORT INFORMATION
  Report Type: Report from Study
  Country: MX (occurrence: MX)
  Receive Date: 20120904
  Receipt Date: 20130517
  Transmission Date: 20140414
  Serious: Yes (Death)
  Sender: FDA-Public Use
  Company Number: PHHY2012MX076527

PATIENT
  Age: 58 Year
  Sex: Female

DRUGS (2)
  1. DIOVAN [Suspect]
     Indication: HYPERTENSION
     Dosage: 1 TABLET (160 MG) PER DAY
     Dates: end: 20120816
  2. FOLIC ACID [Concomitant]
     Dosage: ONCE BY DAY

REACTIONS (1)
  - Metastasis [Fatal]
